FAERS Safety Report 7175619-8 (Version None)
Quarter: 2010Q4

REPORT INFORMATION
  Report Type: 
  Country: None (occurrence: None)
  Receive Date: 20101220
  Receipt Date: 20100324
  Transmission Date: 20110411
  Serious: No
  Sender: FDA-Public Use
  Company Number: US-AMGEN-TCS400749

PATIENT

DRUGS (3)
  1. ENBREL [Suspect]
     Indication: RHEUMATOID ARTHRITIS
     Dosage: 50 MG, QWK
     Route: 058
     Dates: start: 20100305
  2. FLUOXETINE HYDROCHLORIDE [Concomitant]
     Dosage: 40 MG, UNK
  3. ACETAMINOPHEN AND OXYCODONE HCL [Concomitant]

REACTIONS (7)
  - EXFOLIATIVE RASH [None]
  - INJECTION SITE ERYTHEMA [None]
  - INJECTION SITE PAIN [None]
  - INJECTION SITE SWELLING [None]
  - RASH [None]
  - RASH ERYTHEMATOUS [None]
  - SKIN SWELLING [None]
